FAERS Safety Report 4795337-0 (Version None)
Quarter: 2005Q4

REPORT INFORMATION
  Report Type: 
  Country: None (occurrence: None)
  Receive Date: 20051012
  Receipt Date: 20050916
  Transmission Date: 20060501
  Serious: Yes (Death)
  Sender: FDA-Public Use
  Company Number: DE-GLAXOSMITHKLINE-D0047523A

PATIENT
  Age: 54 Year
  Sex: Male
  Weight: 100 kg

DRUGS (2)
  1. AVANDAMET [Suspect]
     Indication: DIABETES MELLITUS
     Dosage: 1002MG TWICE PER DAY
     Route: 048
     Dates: start: 20050422, end: 20050818
  2. DELMUNO [Concomitant]
     Indication: HYPERTENSION
     Dosage: 10MG PER DAY
     Route: 048
     Dates: start: 20010701, end: 20050819

REACTIONS (3)
  - ACUTE MYOCARDIAL INFARCTION [None]
  - DYSPNOEA [None]
  - MALAISE [None]
